FAERS Safety Report 21052461 (Version 1)
Quarter: 2022Q3

REPORT INFORMATION
  Report Type: Spontaneous
  Country: US (occurrence: None)
  Receive Date: 20220706
  Receipt Date: 20220706
  Transmission Date: 20221026
  Serious: Yes (Other)
  Sender: FDA-Public Use
  Company Number: None

PATIENT
  Age: 20 Year
  Sex: 0
  Weight: 58.5 kg

DRUGS (17)
  1. XOLAIR [Suspect]
     Active Substance: OMALIZUMAB
     Indication: Urticaria
     Dosage: OTHER QUANTITY : 2 INJECTION(S);?OTHER FREQUENCY : 1 / 28 DAYS;?
     Route: 058
  2. XOLAIR [Suspect]
     Active Substance: OMALIZUMAB
     Indication: Dysaesthesia
  3. MIRTAZAPINE [Concomitant]
     Active Substance: MIRTAZAPINE
  4. OXCARBAZEPINE [Concomitant]
     Active Substance: OXCARBAZEPINE
  5. SUVOREXANT [Concomitant]
     Active Substance: SUVOREXANT
  6. SINGULAIR [Concomitant]
     Active Substance: MONTELUKAST SODIUM
  7. FAMOTIDINE [Concomitant]
     Active Substance: FAMOTIDINE
  8. Weekly IV hydration [Concomitant]
  9. UNSPECIFIED INGREDIENT [Concomitant]
     Active Substance: UNSPECIFIED INGREDIENT
  10. FAMOTIDINE [Concomitant]
     Active Substance: FAMOTIDINE
  11. ALLEGRA [Concomitant]
     Active Substance: FEXOFENADINE HYDROCHLORIDE
  12. VITAMIN C [Concomitant]
     Active Substance: ASCORBIC ACID
  13. VITAMIN D [Concomitant]
     Active Substance: VITAMIN D NOS
  14. MAGNESIUM [Concomitant]
     Active Substance: MAGNESIUM
  15. IRON [Concomitant]
     Active Substance: IRON
  16. DIETARY SUPPLEMENT [Concomitant]
     Active Substance: DIETARY SUPPLEMENT
  17. CHARCOAL [Concomitant]
     Active Substance: ACTIVATED CHARCOAL

REACTIONS (3)
  - Injection site pain [None]
  - Pain [None]
  - Sleep disorder [None]

NARRATIVE: CASE EVENT DATE: 20200422
